FAERS Safety Report 5963238-8 (Version None)
Quarter: 2008Q4

REPORT INFORMATION
  Report Type: 
  Country: None (occurrence: None)
  Receive Date: 20081120
  Receipt Date: 20081110
  Transmission Date: 20090506
  Serious: Yes (Other)
  Sender: FDA-Public Use
  Company Number: CHPA2008US19565

PATIENT
  Age: 25 Year
  Sex: Female

DRUGS (1)
  1. EXCEDRIN MIGRAINE (NCH) (CAFFEINE CITRATE, ACETYLSALICYLIC AICD, ACTEA [Suspect]
     Indication: MIGRAINE
     Dosage: 4 DF, ONCE/SINGLE, ORAL
     Route: 048
     Dates: start: 20081110, end: 20081110

REACTIONS (3)
  - DYSPNOEA [None]
  - OVERDOSE [None]
  - PALPITATIONS [None]
